FAERS Safety Report 10727675 (Version 2)
Quarter: 2015Q1

REPORT INFORMATION
  Report Type: Spontaneous
  Country: DE (occurrence: DE)
  Receive Date: 20150121
  Receipt Date: 20150206
  Transmission Date: 20150721
  Serious: Yes (Hospitalization, Other)
  Sender: FDA-Public Use
  Company Number: DE-ELI_LILLY_AND_COMPANY-DE201411011032

PATIENT
  Age: 44 Year
  Sex: Female

DRUGS (7)
  1. FORSTEO [Suspect]
     Active Substance: TERIPARATIDE
     Indication: OSTEOPOROSIS
     Dosage: UNK UNK, UNKNOWN
     Route: 058
     Dates: start: 2014, end: 2014
  2. FORSTEO [Suspect]
     Active Substance: TERIPARATIDE
     Dosage: UNK UNK, UNKNOWN
     Route: 058
     Dates: start: 201411
  3. ENBREL [Concomitant]
     Active Substance: ETANERCEPT
     Dosage: UNK, UNKNOWN
     Route: 058
     Dates: start: 2006
  4. DEKRISTOL [Concomitant]
     Active Substance: CHOLECALCIFEROL
     Dosage: 20000 IU, WEEKLY (1/W)
     Route: 065
  5. DECORTIN [Concomitant]
     Active Substance: PREDNISONE
     Dosage: UNK, UNKNOWN
     Route: 065
     Dates: start: 20140429
  6. BONDIOL [Concomitant]
     Active Substance: ALFACALCIDOL
     Dosage: 1 UG, QD
     Route: 065
  7. FORSTEO [Suspect]
     Active Substance: TERIPARATIDE
     Dosage: UNK UNK, QD
     Route: 058

REACTIONS (8)
  - Bone pain [Recovered/Resolved]
  - Migraine [Recovered/Resolved]
  - Accidental overdose [Recovered/Resolved]
  - Wrong technique in drug usage process [None]
  - Incisional hernia [Recovered/Resolved]
  - Impaired healing [Recovered/Resolved]
  - Device defective [None]
  - Myalgia [Recovered/Resolved]

NARRATIVE: CASE EVENT DATE: 2014
